FAERS Safety Report 16637222 (Version 1)
Quarter: 2019Q3

REPORT INFORMATION
  Report Type: Spontaneous
  Country: US (occurrence: US)
  Receive Date: 20190613
  Receipt Date: 20190613
  Transmission Date: 20191004
  Serious: Yes (Other)
  Sender: FDA-Public Use
  Company Number: None

PATIENT
  Age: 44 Year
  Sex: Female
  Weight: 48.1 kg

DRUGS (2)
  1. AIMOVIG [Suspect]
     Active Substance: ERENUMAB-AOOE
     Indication: MIGRAINE
     Route: 058
     Dates: start: 20190212, end: 20190411
  2. AIMOVIG [Suspect]
     Active Substance: ERENUMAB-AOOE
     Route: 058
     Dates: start: 20190411, end: 20190611

REACTIONS (5)
  - Anxiety [None]
  - Granuloma annulare [None]
  - Rash generalised [None]
  - Negative thoughts [None]
  - Immune-mediated adverse reaction [None]

NARRATIVE: CASE EVENT DATE: 20190611
